FAERS Safety Report 25051216 (Version 1)
Quarter: 2025Q1

REPORT INFORMATION
  Report Type: Spontaneous
  Country: FR (occurrence: FR)
  Receive Date: 20250307
  Receipt Date: 20250307
  Transmission Date: 20250409
  Serious: Yes (Other)
  Sender: JOHNSON AND JOHNSON
  Company Number: None

PATIENT
  Age: 8 Year
  Sex: Male
  Weight: 12.8 kg

DRUGS (7)
  1. TOPIRAMATE [Suspect]
     Active Substance: TOPIRAMATE
     Indication: Epilepsy
     Dosage: 2-0-2
     Route: 048
     Dates: start: 2020
  2. TOPIRAMATE [Suspect]
     Active Substance: TOPIRAMATE
     Indication: CSWS syndrome
  3. KEPPRA [Suspect]
     Active Substance: LEVETIRACETAM
     Indication: Epilepsy
     Dosage: 3.5 ML MORNING AND EVENING
     Route: 048
     Dates: start: 201903, end: 20241118
  4. KEPPRA [Suspect]
     Active Substance: LEVETIRACETAM
     Indication: CSWS syndrome
     Dosage: 4 ML MORNING AND EVENING BUT TAKEN AT 8 ML MORNING AND EVENING
     Route: 048
     Dates: start: 20241119
  5. KEPPRA [Suspect]
     Active Substance: LEVETIRACETAM
  6. ZARONTIN [Suspect]
     Active Substance: ETHOSUXIMIDE
     Indication: Epilepsy
     Dosage: 2.5 ML MORNING AND EVENING OR 125 MG MORNING AND EVENING
     Route: 048
     Dates: start: 2020, end: 202411
  7. ZARONTIN [Suspect]
     Active Substance: ETHOSUXIMIDE
     Indication: CSWS syndrome

REACTIONS (2)
  - Decreased appetite [Not Recovered/Not Resolved]
  - Failure to thrive [Not Recovered/Not Resolved]

NARRATIVE: CASE EVENT DATE: 20190101
